FAERS Safety Report 9325387 (Version 1)
Quarter: 2013Q2

REPORT INFORMATION
  Report Type: Spontaneous
  Country: CA (occurrence: CA)
  Receive Date: 20130604
  Receipt Date: 20130604
  Transmission Date: 20140414
  Serious: Yes (Other)
  Sender: FDA-Public Use
  Company Number: CA-ROCHE-1231127

PATIENT
  Age: 47 Year
  Sex: Male

DRUGS (2)
  1. XOLAIR [Suspect]
     Indication: URTICARIA
     Route: 058
     Dates: start: 20130528
  2. XOLAIR [Suspect]
     Indication: OFF LABEL USE

REACTIONS (1)
  - Hypoaesthesia [Recovered/Resolved]
